FAERS Safety Report 15719084 (Version 1)
Quarter: 2018Q4

REPORT INFORMATION
  Report Type: Spontaneous
  Country: IL (occurrence: IL)
  Receive Date: 20181213
  Receipt Date: 20181213
  Transmission Date: 20190205
  Serious: Yes (Other)
  Sender: FDA-Public Use
  Company Number: IL-JNJFOC-20181202952

PATIENT
  Age: 65 Year
  Sex: Male

DRUGS (1)
  1. IMBRUVICA [Suspect]
     Active Substance: IBRUTINIB
     Indication: PRODUCT USED FOR UNKNOWN INDICATION
     Route: 048
     Dates: start: 20181029

REACTIONS (9)
  - Haemothorax [Unknown]
  - Muscle spasms [Unknown]
  - Myalgia [Unknown]
  - Hyponatraemia [Unknown]
  - Neutropenia [Unknown]
  - Dyspnoea [Unknown]
  - Haematoma [Unknown]
  - Tachycardia [Unknown]
  - Hypertension [Unknown]
